FAERS Safety Report 24021390 (Version 1)
Quarter: 2024Q2

REPORT INFORMATION
  Report Type: Spontaneous
  Country: US (occurrence: US)
  Receive Date: 20240627
  Receipt Date: 20240627
  Transmission Date: 20240716
  Serious: No
  Sender: FDA-Public Use
  Company Number: US-ROCHE-3537185

PATIENT
  Sex: Male
  Weight: 165.0 kg

DRUGS (1)
  1. VABYSMO [Suspect]
     Active Substance: FARICIMAB\FARICIMAB-SVOA
     Indication: Neovascular age-related macular degeneration
     Dosage: BOTH EYES ABOUT 6 MONTHS AGO, ON 3/JAN/2024, TOOK THE MOST RECENT DOSE OF FARICIMAB? FREQUENCY TEXT:
     Route: 050

REACTIONS (5)
  - Eye disorder [Not Recovered/Not Resolved]
  - Body height decreased [Not Recovered/Not Resolved]
  - Weight increased [Not Recovered/Not Resolved]
  - Off label use [Unknown]
  - Off label use [Unknown]
